FAERS Safety Report 6018214-6 (Version None)
Quarter: 2008Q4

REPORT INFORMATION
  Report Type: 
  Country: None (occurrence: None)
  Receive Date: 20081223
  Receipt Date: 20081215
  Transmission Date: 20090506
  Serious: Yes (Other)
  Sender: FDA-Public Use
  Company Number: PHHY2008AU32203

PATIENT
  Sex: Female

DRUGS (3)
  1. GLEEVEC [Suspect]
     Indication: CHRONIC MYELOID LEUKAEMIA
     Dosage: 600 MG
     Dates: start: 20061110
  2. GLEEVEC [Suspect]
     Dosage: 500 MG
     Route: 048
     Dates: start: 20080730
  3. ZOCOR [Concomitant]

REACTIONS (6)
  - DIARRHOEA [None]
  - DYSPHONIA [None]
  - FATIGUE [None]
  - LACRIMATION INCREASED [None]
  - RASH [None]
  - SWELLING FACE [None]
